FAERS Safety Report 23327860 (Version 1)
Quarter: 2023Q4

REPORT INFORMATION
  Report Type: Spontaneous
  Country: PL (occurrence: PL)
  Receive Date: 20231221
  Receipt Date: 20231221
  Transmission Date: 20240110
  Serious: Yes (Other)
  Sender: FDA-Public Use
  Company Number: PL-002147023-NVSC2023PL270617

PATIENT
  Age: 32 Year
  Sex: Female

DRUGS (1)
  1. SECUKINUMAB [Suspect]
     Active Substance: SECUKINUMAB
     Indication: Psoriasis
     Dosage: UNK
     Route: 065
     Dates: start: 20230310

REACTIONS (3)
  - Multiple sclerosis relapse [Unknown]
  - Neuroborreliosis [Unknown]
  - Optic neuritis [Unknown]

NARRATIVE: CASE EVENT DATE: 20230927
